FAERS Safety Report 5609253-5 (Version None)
Quarter: 2008Q1

REPORT INFORMATION
  Report Type: 
  Country: None (occurrence: None)
  Receive Date: 20080129
  Receipt Date: 20080129
  Transmission Date: 20080703
  Serious: Yes (Life-Threatening, Hospitalization, Disabling)
  Sender: FDA-Public Use
  Company Number: None

PATIENT
  Age: 62 Year
  Sex: Female
  Weight: 68.0396 kg

DRUGS (5)
  1. IBUPROFEN [Suspect]
     Indication: LIMB INJURY
     Dosage: 600 MG  3 TIMES A DAY  PO
     Route: 048
     Dates: start: 20070820, end: 20070922
  2. IBUPROFEN [Suspect]
     Indication: PAIN MANAGEMENT
     Dosage: 600 MG  3 TIMES A DAY  PO
     Route: 048
     Dates: start: 20070820, end: 20070922
  3. IBUPROFEN [Suspect]
     Indication: SWELLING
     Dosage: 600 MG  3 TIMES A DAY  PO
     Route: 048
     Dates: start: 20070820, end: 20070922
  4. MACULA COMPLETE   6 CAPSULES A DAY   BIOSYNTRX [Suspect]
     Indication: MACULAR DEGENERATION
     Dosage: 3 CAPSULES  2 TIMES A DAY  PO
     Route: 048
     Dates: start: 20070409, end: 20070922
  5. MACULA COMPLETE   6 CAPSULES A DAY   BIOSYNTRX [Suspect]
     Indication: PROPHYLAXIS
     Dosage: 3 CAPSULES  2 TIMES A DAY  PO
     Route: 048
     Dates: start: 20070409, end: 20070922

REACTIONS (2)
  - SUBARACHNOID HAEMORRHAGE [None]
  - TENDON INJURY [None]
